FAERS Safety Report 8530839-2 (Version None)
Quarter: 2012Q3

REPORT INFORMATION
  Report Type: 
  Country: None (occurrence: None)
  Receive Date: 20120723
  Receipt Date: 20120711
  Transmission Date: 20120928
  Serious: Yes (Other)
  Sender: FDA-Public Use
  Company Number: CZ-TEVA-349063ISR

PATIENT
  Age: 5 Year
  Weight: 16.3 kg

DRUGS (4)
  1. ECOBEC [Suspect]
     Route: 055
  2. DESLORATADINE [Suspect]
  3. MONTELUKAST ACTAVIS [Suspect]
  4. FLUTICASONE PROPIONATE/SALMETEROL [Suspect]

REACTIONS (1)
  - GROWTH RETARDATION [None]
